FAERS Safety Report 4518867-5 (Version None)
Quarter: 2004Q4

REPORT INFORMATION
  Report Type: 
  Country: None (occurrence: None)
  Receive Date: 20041201
  Receipt Date: 20041117
  Transmission Date: 20050328
  Serious: Yes (Other)
  Sender: FDA-Public Use
  Company Number: 2004029619

PATIENT
  Age: 74 Year
  Sex: Female
  Weight: 86.1834 kg

DRUGS (12)
  1. LIPITOR [Suspect]
     Indication: BLOOD CHOLESTEROL INCREASED
     Dosage: 10 MG (10 MG, 1 IN 1 D), ORAL
     Route: 048
     Dates: start: 20010801, end: 20011209
  2. BEXTRA [Suspect]
     Indication: ARTHRITIS
     Dosage: ORAL
     Route: 048
     Dates: start: 20010101, end: 20041101
  3. CELEBREX [Suspect]
     Indication: ARTHRITIS
     Dosage: 100 MG (100 MG, 1 IN 1 D), ORAL
     Route: 048
  4. LOPID [Suspect]
     Indication: BLOOD CHOLESTEROL INCREASED
     Dosage: 1200 MG (600 MG 2 IN 1 D) ,ORAL
     Route: 048
     Dates: start: 20030101
  5. GLUCOTROL XL [Suspect]
     Indication: DIABETES MELLITUS
     Dosage: 5 MG (1 IN 1 D), ORAL
     Route: 048
     Dates: start: 20040101
  6. GEMFIBROZIL [Suspect]
     Indication: BLOOD CHOLESTEROL INCREASED
     Dosage: 1200 MG (600 MG, 2 IN 1 D), ORAL
     Route: 048
  7. EZETIMIBE [Concomitant]
  8. PIOGLITAZONE HCL [Concomitant]
  9. LEVOTHYROXINE SODIUM [Concomitant]
  10. ATENOLOL [Concomitant]
  11. PARACETAMOL [Concomitant]
  12. IBUPROFEN [Concomitant]

REACTIONS (29)
  - ARTERIOSPASM CORONARY [None]
  - ARTHRITIS [None]
  - BACK PAIN [None]
  - BLOOD CHOLESTEROL INCREASED [None]
  - CARDIAC DISORDER [None]
  - CHEST DISCOMFORT [None]
  - DERMATITIS ACNEIFORM [None]
  - DIABETES MELLITUS NON-INSULIN-DEPENDENT [None]
  - DRY SKIN [None]
  - DYSPHAGIA [None]
  - DYSPNOEA [None]
  - ERYTHEMA [None]
  - EXCORIATION [None]
  - GASTROINTESTINAL DISORDER [None]
  - GASTROOESOPHAGEAL REFLUX DISEASE [None]
  - IMPAIRED HEALING [None]
  - MENTAL DISORDER [None]
  - MYALGIA [None]
  - NERVOUSNESS [None]
  - PAIN [None]
  - RASH [None]
  - SCAR [None]
  - SKIN INDURATION [None]
  - SKIN INFECTION [None]
  - SKIN IRRITATION [None]
  - SKIN LESION [None]
  - STOMACH DISCOMFORT [None]
  - ULCER [None]
  - URTICARIA [None]
